FAERS Safety Report 8251537-9 (Version None)
Quarter: 2012Q2

REPORT INFORMATION
  Report Type: 
  Country: None (occurrence: None)
  Receive Date: 20120402
  Receipt Date: 20120327
  Transmission Date: 20120825
  Serious: Yes (Other)
  Sender: FDA-Public Use
  Company Number: US-US-EMD SERONO, INC.-7083938

PATIENT
  Sex: Female

DRUGS (4)
  1. VITAMIN TAB [Concomitant]
     Indication: PRODUCT USED FOR UNKNOWN INDICATION
  2. REBIF [Suspect]
     Indication: MULTIPLE SCLEROSIS
     Route: 058
     Dates: start: 20070305
  3. INHALERS [Concomitant]
     Indication: ASTHMA
  4. SEIZURE MEDICATION [Concomitant]
     Indication: CONVULSION
     Dates: start: 20000101

REACTIONS (4)
  - BLADDER PROLAPSE [None]
  - INJECTION SITE HAEMATOMA [None]
  - INFLUENZA LIKE ILLNESS [None]
  - ASPIRATION [None]
